FAERS Safety Report 19372225 (Version 2)
Quarter: 2021Q2

REPORT INFORMATION
  Report Type: Report from Study
  Country: AR (occurrence: AR)
  Receive Date: 20210604
  Receipt Date: 20210611
  Transmission Date: 20210717
  Serious: Yes (Death, Hospitalization)
  Sender: FDA-Public Use
  Company Number: PHHY2018AR047166

PATIENT
  Age: 64 Year
  Sex: Female

DRUGS (3)
  1. LEVOTHYROXINE. [Concomitant]
     Active Substance: LEVOTHYROXINE
     Indication: PRODUCT USED FOR UNKNOWN INDICATION
     Dosage: 125 UG
     Route: 065
  2. KISQALI [Suspect]
     Active Substance: RIBOCICLIB
     Indication: BREAST CANCER METASTATIC
     Dosage: 600 MG, QD
     Route: 048
     Dates: start: 20180529
  3. T4 MONTPELLIER [Concomitant]
     Indication: PRODUCT USED FOR UNKNOWN INDICATION
     Dosage: 1 TABLET DAILY
     Route: 065

REACTIONS (21)
  - Ageusia [Unknown]
  - White blood cell count decreased [Not Recovered/Not Resolved]
  - Malaise [Unknown]
  - Off label use [Unknown]
  - COVID-19 [Fatal]
  - Anosmia [Unknown]
  - Pyrexia [Unknown]
  - Sleep apnoea syndrome [Fatal]
  - Alopecia [Unknown]
  - Myocardial infarction [Fatal]
  - Dyspepsia [Unknown]
  - Body temperature increased [Unknown]
  - Myalgia [Unknown]
  - Dyspnoea [Unknown]
  - White blood cell count decreased [Recovered/Resolved]
  - Abdominal discomfort [Recovered/Resolved]
  - Red blood cell count decreased [Not Recovered/Not Resolved]
  - Oxygen saturation abnormal [Unknown]
  - Joint swelling [Unknown]
  - Memory impairment [Unknown]
  - Arthralgia [Unknown]

NARRATIVE: CASE EVENT DATE: 20190901
